FAERS Safety Report 8144826-X (Version None)
Quarter: 2012Q1

REPORT INFORMATION
  Report Type: 
  Country: None (occurrence: None)
  Receive Date: 20120217
  Receipt Date: 20120213
  Transmission Date: 20120608
  Serious: Yes (Death)
  Sender: FDA-Public Use
  Company Number: US-AMGEN-USASP2011015329

PATIENT
  Age: 77 Year
  Sex: Female

DRUGS (13)
  1. PROLIA [Suspect]
     Indication: OSTEOPOROSIS POSTMENOPAUSAL
     Dosage: UNK
     Dates: start: 20101020, end: 20110418
  2. OXYGEN [Concomitant]
  3. VITAMINS                           /00067501/ [Concomitant]
  4. POTASSIUM CHLORIDE [Concomitant]
  5. METOPROLOL TARTRATE [Concomitant]
     Dosage: 1 MG, QD
  6. ALBUTEROL [Concomitant]
  7. LASIX [Concomitant]
  8. ADVAIR DISKUS 100/50 [Concomitant]
     Dosage: 1 UNK, UNK
  9. DUONEB [Concomitant]
  10. PROAIR HFA [Concomitant]
  11. DILTIAZEM [Concomitant]
     Dosage: 1 MG, QD
  12. PREDNISONE [Concomitant]
     Dosage: 1 MG, QD
  13. METFORMIN HCL [Concomitant]
     Dosage: 1 MG, UNK

REACTIONS (3)
  - EMPHYSEMA [None]
  - TEMPOROMANDIBULAR JOINT SYNDROME [None]
  - JOINT CREPITATION [None]
